FAERS Safety Report 7780591-3 (Version None)
Quarter: 2011Q3

REPORT INFORMATION
  Report Type: 
  Country: None (occurrence: None)
  Receive Date: 20110927
  Receipt Date: 20101115
  Transmission Date: 20111222
  Serious: No
  Sender: FDA-Public Use
  Company Number: US-BRISTOL-MYERS SQUIBB COMPANY-14710198

PATIENT
  Age: 83 Year
  Sex: Female
  Weight: 65 kg

DRUGS (11)
  1. AVAPRO [Suspect]
     Indication: HYPERTENSION
     Route: 048
  2. VITAMINS + MINERALS [Concomitant]
  3. PHOSPHATIDYL SERINE [Concomitant]
  4. UBIDECARENONE [Concomitant]
     Dosage: COQ10
  5. LOVAZA [Concomitant]
  6. ETHYL ICOSAPENTATE [Concomitant]
  7. AVAPRO [Suspect]
     Indication: CARDIAC DISORDER
     Route: 048
  8. DILTIAZEM [Concomitant]
  9. ASTRAGALUS [Concomitant]
  10. SYNTHROID [Concomitant]
  11. VITAMIN D [Concomitant]

REACTIONS (3)
  - NASAL CONGESTION [None]
  - COUGH [None]
  - FATIGUE [None]
